FAERS Safety Report 10090515 (Version 2)
Quarter: 2014Q2

REPORT INFORMATION
  Report Type: Report from Study
  Country: AU (occurrence: AU)
  Receive Date: 20140421
  Receipt Date: 20140421
  Transmission Date: 20141212
  Serious: Yes (Other)
  Sender: FDA-Public Use
  Company Number: PHHY2014AU024332

PATIENT
  Sex: Female

DRUGS (2)
  1. ACLASTA [Suspect]
     Indication: OSTEOPOROSIS
     Dosage: 5 MG
     Route: 042
     Dates: start: 20110604
  2. ACLASTA [Suspect]
     Dosage: 5 MG
     Route: 042
     Dates: start: 20130130

REACTIONS (6)
  - Cataract operation complication [Unknown]
  - Lenticular opacities [Unknown]
  - Eye disorder [Not Recovered/Not Resolved]
  - Blood aluminium increased [Unknown]
  - Anxiety [Unknown]
  - Malaise [Unknown]
